FAERS Safety Report 5062528-3 (Version None)
Quarter: 2006Q3

REPORT INFORMATION
  Report Type: 
  Country: None (occurrence: None)
  Receive Date: 20060721
  Receipt Date: 20060704
  Transmission Date: 20061208
  Serious: Yes (Death)
  Sender: FDA-Public Use
  Company Number: IT200607000267

PATIENT
  Age: 82 Year
  Sex: Female

DRUGS (3)
  1. CYMBALTA [Suspect]
     Indication: DEPRESSION
     Dosage: 60 MG
     Dates: start: 20060201, end: 20060601
  2. ZYPREXA [Suspect]
  3. ORAL ANTIDIABETICS [Concomitant]

REACTIONS (1)
  - COMPLETED SUICIDE [None]
